FAERS Safety Report 9256007 (Version 1)
Quarter: 2013Q2

REPORT INFORMATION
  Report Type: Spontaneous
  Country: ES (occurrence: ES)
  Receive Date: 20130425
  Receipt Date: 20130425
  Transmission Date: 20140414
  Serious: Yes (Hospitalization)
  Sender: FDA-Public Use
  Company Number: ES-SANOFI-AVENTIS-2013SA040858

PATIENT
  Age: 43 Year
  Sex: Male

DRUGS (4)
  1. CLEXANE [Suspect]
     Indication: THROMBOSIS PROPHYLAXIS
     Dosage: 40MG
     Route: 058
     Dates: start: 20120907, end: 20120914
  2. AUGMENTINE [Suspect]
     Indication: CELLULITIS
     Dosage: 1-1-1
     Route: 048
     Dates: start: 20120910, end: 20120912
  3. ATORVASTATIN [Concomitant]
     Indication: DYSLIPIDAEMIA
     Dosage: 0-0-1
     Route: 048
  4. OMEPRAZOLE [Concomitant]
     Indication: PROPHYLAXIS AGAINST GASTROINTESTINAL ULCER
     Dosage: 1 CP
     Route: 048

REACTIONS (1)
  - Hepatitis [Recovered/Resolved]
